FAERS Safety Report 6354852-9 (Version None)
Quarter: 2009Q3

REPORT INFORMATION
  Report Type: 
  Country: None (occurrence: None)
  Receive Date: 20090914
  Receipt Date: 20090903
  Transmission Date: 20100115
  Serious: Yes (Other)
  Sender: FDA-Public Use
  Company Number: CA-JNJFOC-20090901879

PATIENT
  Sex: Male
  Weight: 161 kg

DRUGS (11)
  1. REMICADE [Suspect]
     Dosage: WEEK 2
     Route: 042
  2. REMICADE [Suspect]
     Dosage: WEEK 0
     Route: 042
  3. REMICADE [Suspect]
     Indication: PSORIATIC ARTHROPATHY
     Dosage: 1ST TRY WITH INFLIXIMAB
     Route: 042
  4. BENADRYL [Concomitant]
     Indication: PREMEDICATION
     Route: 048
  5. HYDROMORPHONE HCL [Concomitant]
  6. SYMBICORT [Concomitant]
     Dosage: DOSE:  ^200-6MCG^
     Route: 055
  7. TERBUTALINE SULFATE [Concomitant]
     Route: 055
  8. AMERGE [Concomitant]
     Indication: MIGRAINE
  9. NEXIUM [Concomitant]
  10. GEN-METFORMIN [Concomitant]
  11. STATEX [Concomitant]

REACTIONS (11)
  - ARTHRALGIA [None]
  - BLOOD PRESSURE DECREASED [None]
  - CHILLS [None]
  - ERYTHEMA [None]
  - FATIGUE [None]
  - FEELING HOT [None]
  - HEADACHE [None]
  - INFUSION RELATED REACTION [None]
  - OCULAR HYPERAEMIA [None]
  - PULSE ABNORMAL [None]
  - TREMOR [None]
